FAERS Safety Report 14329204 (Version 1)
Quarter: 2017Q4

REPORT INFORMATION
  Report Type: Spontaneous
  Country: US (occurrence: US)
  Receive Date: 20171227
  Receipt Date: 20171227
  Transmission Date: 20180321
  Serious: No
  Sender: FDA-Public Use
  Company Number: US-BAYER-2017-247719

PATIENT
  Age: 71 Year
  Sex: Female
  Weight: 68 kg

DRUGS (2)
  1. ALEVE [Suspect]
     Active Substance: NAPROXEN SODIUM
     Indication: PAIN
     Dosage: UNK
     Route: 048
     Dates: start: 201712, end: 20171219
  2. THYROXINE [Concomitant]
     Active Substance: LEVOTHYROXINE

REACTIONS (6)
  - Product use issue [Unknown]
  - Drug ineffective [Unknown]
  - Vomiting [Recovering/Resolving]
  - Incorrect dosage administered [None]
  - Malaise [Recovering/Resolving]
  - Abdominal pain upper [Recovering/Resolving]
